FAERS Safety Report 12290278 (Version 1)
Quarter: 2016Q2

REPORT INFORMATION
  Report Type: Spontaneous
  Country: US (occurrence: US)
  Receive Date: 20160421
  Receipt Date: 20160421
  Transmission Date: 20160815
  Serious: No
  Sender: FDA-Public Use
  Company Number: US-ALVOGEN-2015-ALVOGEN-017621

PATIENT
  Sex: Female
  Weight: 56.25 kg

DRUGS (6)
  1. ATENOLOL. [Suspect]
     Active Substance: ATENOLOL
     Indication: MITRAL VALVE DISEASE
     Route: 048
     Dates: start: 201506
  2. ACETYLSALICYLIC ACID [Concomitant]
     Active Substance: ASPIRIN
     Indication: PRODUCT USED FOR UNKNOWN INDICATION
     Route: 048
     Dates: start: 2010
  3. ATENOLOL. [Suspect]
     Active Substance: ATENOLOL
     Indication: MITRAL VALVE DISEASE
     Route: 048
     Dates: start: 1960, end: 201504
  4. COLECALCIFEROL [Concomitant]
     Active Substance: CHOLECALCIFEROL
     Indication: SUPPORTIVE CARE
     Route: 048
  5. MINERALS NOS W/VITAMINS NOS [Concomitant]
     Active Substance: MINERALS\VITAMINS
     Indication: EYELID DISORDER
     Route: 047
     Dates: start: 2005
  6. ASCORBIC ACID. [Concomitant]
     Active Substance: ASCORBIC ACID
     Indication: PRODUCT USED FOR UNKNOWN INDICATION
     Route: 048
     Dates: start: 2010

REACTIONS (2)
  - Muscle spasms [Unknown]
  - Heart rate decreased [Unknown]
